FAERS Safety Report 22211847 (Version 1)
Quarter: 2023Q2

REPORT INFORMATION
  Report Type: Spontaneous
  Country: US (occurrence: None)
  Receive Date: 20230414
  Receipt Date: 20230414
  Transmission Date: 20230722
  Serious: Yes (Other)
  Sender: FDA-Public Use
  Company Number: US-ROCHE-3240393

PATIENT
  Age: 22 Year
  Sex: Female

DRUGS (7)
  1. OCREVUS [Suspect]
     Active Substance: OCRELIZUMAB
     Indication: Multiple sclerosis
     Route: 065
  2. BACLOFEN [Concomitant]
     Active Substance: BACLOFEN
  3. CELECOXIB [Concomitant]
     Active Substance: CELECOXIB
  4. GABAPENTIN [Concomitant]
     Active Substance: GABAPENTIN
  5. MODAFINIL [Concomitant]
     Active Substance: MODAFINIL
  6. NURTEC ODT [Concomitant]
     Active Substance: RIMEGEPANT SULFATE
  7. AJOVY [Concomitant]
     Active Substance: FREMANEZUMAB-VFRM

REACTIONS (10)
  - Cognitive disorder [Unknown]
  - Multiple sclerosis relapse [Unknown]
  - Headache [Unknown]
  - Eye pain [Unknown]
  - Pain [Unknown]
  - Choking [Unknown]
  - Urinary tract disorder [Unknown]
  - Neuralgia [Unknown]
  - Multiple sclerosis [Unknown]
  - Feeling abnormal [Unknown]
